FAERS Safety Report 17488860 (Version 2)
Quarter: 2021Q2

REPORT INFORMATION
  Report Type: Report from Study
  Country: GB (occurrence: GB)
  Receive Date: 20200303
  Receipt Date: 20210608
  Transmission Date: 20210716
  Serious: Yes (Other)
  Sender: FDA-Public Use
  Company Number: GB-PFIZER INC-2020087123

PATIENT

DRUGS (3)
  1. OXALIPLATIN. [Suspect]
     Active Substance: OXALIPLATIN
     Indication: GASTROINTESTINAL NEOPLASM
     Dosage: 45 MG/M2, CYCLIC
     Route: 033
  2. OXALIPLATIN. [Suspect]
     Active Substance: OXALIPLATIN
     Dosage: 60 MG/M2, CYCLIC
     Route: 033
  3. OXALIPLATIN. [Suspect]
     Active Substance: OXALIPLATIN
     Dosage: 90 MG/M2, CYCLIC
     Route: 033

REACTIONS (3)
  - Hyperamylasaemia [Recovered/Resolved]
  - Pancreatitis [Recovered/Resolved]
  - Lipase increased [Recovered/Resolved]
